FAERS Safety Report 25715439 (Version 1)
Quarter: 2025Q3

REPORT INFORMATION
  Report Type: Spontaneous
  Country: US (occurrence: None)
  Receive Date: 20250821
  Receipt Date: 20250821
  Transmission Date: 20251021
  Serious: Yes (Hospitalization)
  Sender: FDA-CTU
  Company Number: None

PATIENT
  Sex: Female

DRUGS (5)
  1. WINREVAIR [Suspect]
     Active Substance: SOTATERCEPT-CSRK
     Indication: Pulmonary arterial hypertension
     Route: 058
     Dates: start: 20240730
  2. WINREVAIR [Concomitant]
     Active Substance: SOTATERCEPT-CSRK
  3. AMBRISENTAN [Concomitant]
     Active Substance: AMBRISENTAN
  4. ALYQ [Concomitant]
     Active Substance: TADALAFIL
  5. UPTRAVI [Suspect]
     Active Substance: SELEXIPAG

REACTIONS (1)
  - Hospitalisation [None]
